FAERS Safety Report 18714001 (Version 1)
Quarter: 2021Q1

REPORT INFORMATION
  Report Type: Spontaneous
  Country: DE (occurrence: DE)
  Receive Date: 20210107
  Receipt Date: 20210107
  Transmission Date: 20210419
  Serious: Yes (Life-Threatening, Hospitalization)
  Sender: FDA-Public Use
  Company Number: DE-ASTRAZENECA-2020SF66005

PATIENT
  Sex: Female
  Weight: 73 kg

DRUGS (5)
  1. METFORMIN [Concomitant]
     Active Substance: METFORMIN HYDROCHLORIDE
     Indication: DIABETES MELLITUS
  2. FULVESTRANT. [Suspect]
     Active Substance: FULVESTRANT
     Route: 030
     Dates: start: 20190226
  3. IBRANCE [Suspect]
     Active Substance: PALBOCICLIB
     Route: 048
     Dates: start: 20190228
  4. ALENDRON [Concomitant]
     Active Substance: ALENDRONATE SODIUM
     Dates: start: 20181206
  5. XARELTO [Concomitant]
     Active Substance: RIVAROXABAN
     Indication: PULMONARY EMBOLISM
     Dates: start: 201812

REACTIONS (5)
  - Atypical pneumonia [Recovered/Resolved]
  - Anaemia [Recovered/Resolved]
  - Nausea [Recovered/Resolved]
  - Pulmonary embolism [Recovered/Resolved]
  - Iron deficiency [Recovered/Resolved]

NARRATIVE: CASE EVENT DATE: 20190618
